FAERS Safety Report 11204285 (Version 2)
Quarter: 2015Q3

REPORT INFORMATION
  Report Type: Spontaneous
  Country: BR (occurrence: BR)
  Receive Date: 20150620
  Receipt Date: 20150720
  Transmission Date: 20151125
  Serious: Yes (Hospitalization, Other)
  Sender: FDA-Public Use
  Company Number: PHHY2015BR073760

PATIENT
  Sex: Male
  Weight: 71 kg

DRUGS (3)
  1. LEPONEX [Suspect]
     Active Substance: CLOZAPINE
     Indication: SCHIZOPHRENIA
     Dosage: 8 DF, QD (2 TABLETS IN THE MORNING, 2 TABLETS IN THE AFTERNOON AND 4 TABLETS AT BEDTIME)
     Route: 048
  2. DEPAKENE [Concomitant]
     Active Substance: VALPROIC ACID
     Indication: SCHIZOPHRENIA
     Dosage: 4 DF, QD
     Route: 048
  3. RISPERDAL [Concomitant]
     Active Substance: RISPERIDONE
     Indication: SCHIZOPHRENIA
     Dosage: 1 DF, QD
     Route: 048

REACTIONS (5)
  - Aggression [Recovering/Resolving]
  - Malaise [Unknown]
  - Suicidal ideation [Recovering/Resolving]
  - Tremor [Recovering/Resolving]
  - Overweight [Recovered/Resolved]
